FAERS Safety Report 15547135 (Version 2)
Quarter: 2018Q4

REPORT INFORMATION
  Report Type: Spontaneous
  Country: US (occurrence: US)
  Receive Date: 20181024
  Receipt Date: 20181217
  Transmission Date: 20190205
  Serious: Yes (Hospitalization)
  Sender: FDA-Public Use
  Company Number: US-LUNDBECK-DKLU2055954

PATIENT
  Age: 2 Year
  Sex: Female

DRUGS (1)
  1. SABRIL [Suspect]
     Active Substance: VIGABATRIN
     Indication: SEIZURE
     Route: 048
     Dates: start: 20170711

REACTIONS (4)
  - Sepsis [Recovering/Resolving]
  - Pneumonia aspiration [Recovering/Resolving]
  - Acute respiratory failure [Recovering/Resolving]
  - Viral myelitis [Recovering/Resolving]

NARRATIVE: CASE EVENT DATE: 20181028
